FAERS Safety Report 8517231-1 (Version None)
Quarter: 2012Q3

REPORT INFORMATION
  Report Type: 
  Country: None (occurrence: None)
  Receive Date: 20120718
  Receipt Date: 20120711
  Transmission Date: 20120928
  Serious: Yes (Life-Threatening)
  Sender: FDA-Public Use
  Company Number: NO-PFIZER INC-2012167178

PATIENT
  Age: 7 Year
  Sex: Female

DRUGS (1)
  1. CLINDAMYCIN HCL [Suspect]
     Indication: SKIN INFECTION
     Dosage: 180 MG (12 ML), 3X/DAY
     Dates: start: 20120419

REACTIONS (4)
  - INCORRECT DOSE ADMINISTERED [None]
  - DYSPNOEA [None]
  - PHARYNGEAL OEDEMA [None]
  - URTICARIA [None]
